FAERS Safety Report 6109729-0 (Version None)
Quarter: 2009Q1

REPORT INFORMATION
  Report Type: 
  Country: None (occurrence: None)
  Receive Date: 20090310
  Receipt Date: 20080325
  Transmission Date: 20090719
  Serious: No
  Sender: FDA-Public Use
  Company Number: A0717253A

PATIENT
  Age: 34 Year
  Sex: Female

DRUGS (1)
  1. NICORETTE [Suspect]
     Dates: start: 20080310, end: 20080320

REACTIONS (5)
  - DRY SKIN [None]
  - ERYTHEMA [None]
  - ERYTHEMA OF EYELID [None]
  - PRURITUS [None]
  - RASH [None]
